FAERS Safety Report 25354768 (Version 2)
Quarter: 2025Q2

REPORT INFORMATION
  Report Type: Spontaneous
  Country: US (occurrence: US)
  Receive Date: 20250524
  Receipt Date: 20250611
  Transmission Date: 20250717
  Serious: No
  Sender: CSL BEHRING
  Company Number: US-BEH-2025205185

PATIENT
  Age: 44 Year
  Sex: Female

DRUGS (1)
  1. HIZENTRA [Suspect]
     Active Substance: HUMAN IMMUNOGLOBULIN G
     Indication: Hypergammaglobulinaemia
     Dosage: 15 G, QOW
     Route: 058
     Dates: start: 20250430

REACTIONS (5)
  - Rash erythematous [Unknown]
  - Rash [Unknown]
  - Headache [Unknown]
  - Abdominal pain upper [Unknown]
  - Rash papular [Unknown]

NARRATIVE: CASE EVENT DATE: 20250503
